FAERS Safety Report 7722537-X (Version None)
Quarter: 2011Q3

REPORT INFORMATION
  Report Type: 
  Country: None (occurrence: None)
  Receive Date: 20110831
  Receipt Date: 20110825
  Transmission Date: 20111222
  Serious: Yes (Other)
  Sender: FDA-Public Use
  Company Number: PHEH2011US02567

PATIENT
  Sex: Male
  Weight: 86.168 kg

DRUGS (13)
  1. PREDNISONE [Concomitant]
     Dosage: UNK UKN, UNK
  2. JANUVIA [Concomitant]
     Dosage: UNK UKN, UNK
  3. FOSAMAX [Concomitant]
     Dosage: UNK UKN, UNK
  4. PROZAC [Concomitant]
     Dosage: UNK UKN, UNK
  5. POTASSIUM [Concomitant]
     Dosage: UNK UKN, UNK
  6. AVODART [Concomitant]
     Dosage: UNK UKN, UNK
  7. DOXAZOSIN MESYLATE [Concomitant]
     Dosage: UNK UKN, UNK
  8. BUMEX [Concomitant]
     Dosage: UNK UKN, UNK
  9. PRILOSEC [Concomitant]
     Dosage: UNK UKN, UNK
  10. EXJADE [Suspect]
     Indication: HAEMATOPOIETIC NEOPLASM
     Dosage: 1000 MG, DAILY
     Route: 048
     Dates: start: 20100512, end: 20110811
  11. ASPIRIN [Concomitant]
     Dosage: UNK UKN, UNK
  12. VITAMIN B6 [Concomitant]
     Dosage: UNK UKN, UNK
  13. SINGULAIR [Concomitant]
     Dosage: UNK UKN, UNK

REACTIONS (3)
  - JOINT INJURY [None]
  - RENAL FAILURE [None]
  - BLOOD CREATININE INCREASED [None]
